FAERS Safety Report 14310488 (Version 1)
Quarter: 2017Q4

REPORT INFORMATION
  Report Type: Not Available
  Country: US (occurrence: US)
  Receive Date: 20171220
  Receipt Date: 20171220
  Transmission Date: 20180321
  Serious: Yes (Hospitalization)
  Sender: FDA-Public Use
  Company Number: US-3M-2017-US-015182

PATIENT
  Sex: Female

DRUGS (1)
  1. OMNI GEL, MINT, 4.3 OZ [Suspect]
     Active Substance: STANNOUS FLUORIDE
     Dosage: APPLYING OMNI GEL IN HER MOUTH GUARD AS PRESCRIBED BY HER DENTIST
     Route: 048

REACTIONS (6)
  - Blood potassium decreased [Recovered/Resolved]
  - Cardiac flutter [Recovered/Resolved]
  - Gastrointestinal inflammation [Recovered/Resolved]
  - Gastrointestinal disorder [Recovered/Resolved]
  - Dysgeusia [Recovered/Resolved]
  - Diarrhoea [Recovered/Resolved]

NARRATIVE: CASE EVENT DATE: 201707
